FAERS Safety Report 4450600-8 (Version None)
Quarter: 2004Q3

REPORT INFORMATION
  Report Type: 
  Country: None (occurrence: None)
  Receive Date: 20040913
  Receipt Date: 20040616
  Transmission Date: 20050211
  Serious: No
  Sender: FDA-Public Use
  Company Number: 2004-BP-05004BP(0)

PATIENT
  Age: 86 Year
  Sex: Female

DRUGS (10)
  1. SPIRIVA [Suspect]
     Indication: DYSPNOEA
     Dosage: 18 MCG (18 MCG), IH
     Route: 055
     Dates: start: 20040610
  2. ADVAIR (SERETIDE MITE) [Concomitant]
  3. TOPOROL [Concomitant]
  4. LEVOXYL [Concomitant]
  5. PLAVIX [Concomitant]
  6. PROTONIX [Concomitant]
  7. DIOVAN [Concomitant]
  8. LASIX [Concomitant]
  9. LIPITOR [Concomitant]
  10. NITROGLYCERIN [Concomitant]

REACTIONS (2)
  - FEELING ABNORMAL [None]
  - PALPITATIONS [None]
